FAERS Safety Report 4616915-5 (Version None)
Quarter: 2005Q1

REPORT INFORMATION
  Report Type: 
  Country: None (occurrence: None)
  Receive Date: 20050321
  Receipt Date: 20050308
  Transmission Date: 20050727
  Serious: Yes (Death)
  Sender: FDA-Public Use
  Company Number: 2005043396

PATIENT
  Age: 10 Year
  Sex: Male
  Weight: 30 kg

DRUGS (1)
  1. MAGNEX (SULBACTAM, CEFOPERAZONE) [Suspect]
     Indication: THERMAL BURN
     Dosage: 2 GRAM ( 1 GRAM, 2  IN D), INTRAVENOUS
     Route: 042
     Dates: start: 20050222, end: 20050227

REACTIONS (1)
  - SEPSIS [None]
